FAERS Safety Report 18005271 (Version 1)
Quarter: 2020Q3

REPORT INFORMATION
  Report Type: Spontaneous
  Country: US (occurrence: US)
  Receive Date: 20200710
  Receipt Date: 20200710
  Transmission Date: 20201103
  Serious: No
  Sender: FDA-Public Use
  Company Number: US-ASTRAZENECA-2020SE84577

PATIENT
  Age: 52 Year
  Sex: Female

DRUGS (1)
  1. ZOMIG [Suspect]
     Active Substance: ZOLMITRIPTAN
     Indication: MIGRAINE
     Dosage: 5 MG;USE 1 SPRAY IN 1 NOSTRIL; MAY REPEAT IN 2 HOURS IF NEEDED
     Route: 045

REACTIONS (1)
  - Illness [Unknown]
